FAERS Safety Report 9402320 (Version 1)
Quarter: 2013Q3

REPORT INFORMATION
  Report Type: Spontaneous
  Country: CN (occurrence: CN)
  Receive Date: 20130716
  Receipt Date: 20130716
  Transmission Date: 20140515
  Serious: Yes (Other)
  Sender: FDA-Public Use
  Company Number: CN-BAXTER-2013BAX026628

PATIENT
  Age: 34 Year
  Sex: Female
  Weight: 56 kg

DRUGS (3)
  1. 0.9% SODIUM CHLORIDE INJECTION [Suspect]
     Indication: MEDICATION DILUTION
     Route: 041
     Dates: start: 20120801, end: 20120801
  2. CEFAMANDOLE NAFATE [Suspect]
     Indication: PERIODONTITIS
     Route: 041
     Dates: start: 20120801, end: 20120801
  3. DEXAMETHASONE PHOSPHATE [Suspect]
     Indication: PERIODONTITIS
     Route: 041
     Dates: start: 20120801, end: 20120801

REACTIONS (2)
  - Rash [Recovering/Resolving]
  - Pruritus [Recovering/Resolving]
